FAERS Safety Report 6361763-1 (Version None)
Quarter: 2009Q3

REPORT INFORMATION
  Report Type: 
  Country: None (occurrence: None)
  Receive Date: 20090918
  Receipt Date: 20090911
  Transmission Date: 20100115
  Serious: Yes (Hospitalization)
  Sender: FDA-Public Use
  Company Number: CH-ASTRAZENECA-2009SE12908

PATIENT
  Age: 72 Year
  Sex: Male

DRUGS (13)
  1. NEXIUM [Suspect]
     Indication: GASTRIC ULCER
     Route: 048
  2. PLAVIX [Suspect]
     Route: 048
  3. CRESTOR [Concomitant]
     Route: 048
  4. CEFEPIME [Concomitant]
     Indication: RESPIRATORY TRACT INFECTION
     Route: 041
     Dates: start: 20090620
  5. APROVEL [Concomitant]
     Route: 048
  6. DAFALGAN [Concomitant]
     Route: 048
     Dates: start: 20090601
  7. AMLODIPINE [Concomitant]
     Route: 048
     Dates: start: 20090603
  8. ELIXIR FRANGULAC COMPOSITUM [Concomitant]
     Route: 048
     Dates: start: 20090603
  9. CYMBALTA [Concomitant]
     Route: 048
     Dates: start: 20090609
  10. LYRICA [Concomitant]
     Route: 048
     Dates: start: 20090612
  11. DOSPIR [Concomitant]
     Route: 055
     Dates: start: 20090618
  12. SERETIDE [Concomitant]
     Route: 055
     Dates: start: 20090622
  13. TEMGESIC [Concomitant]
     Route: 060
     Dates: start: 20090601

REACTIONS (1)
  - MYOCARDIAL INFARCTION [None]
